FAERS Safety Report 5502452-2 (Version None)
Quarter: 2007Q4

REPORT INFORMATION
  Report Type: 
  Country: None (occurrence: None)
  Receive Date: 20071030
  Receipt Date: 20071018
  Transmission Date: 20080405
  Serious: Yes (Hospitalization, Other)
  Sender: FDA-Public Use
  Company Number: BR-PFIZER INC-2007080654

PATIENT
  Sex: Female
  Weight: 68 kg

DRUGS (6)
  1. CHAMPIX [Suspect]
     Indication: SMOKING CESSATION THERAPY
     Route: 048
     Dates: start: 20070816, end: 20070922
  2. CHAMPIX [Suspect]
     Indication: TOBACCO ABUSE
  3. EFFEXOR [Concomitant]
     Indication: ANXIETY
     Dosage: DAILY DOSE:150MG
     Route: 048
     Dates: start: 20070301, end: 20070901
  4. NOVALGINA [Concomitant]
     Dates: end: 20070901
  5. OMEPRAZOLE [Concomitant]
     Dates: end: 20070901
  6. ATORVASTATIN CALCIUM [Concomitant]
     Dosage: DAILY DOSE:20MG
     Route: 048
     Dates: start: 20040101, end: 20070901

REACTIONS (8)
  - DRUG ERUPTION [None]
  - HAEMATURIA [None]
  - ILL-DEFINED DISORDER [None]
  - MYALGIA [None]
  - PYREXIA [None]
  - SKIN LESION [None]
  - TRANSAMINASES ABNORMAL [None]
  - VASCULITIS [None]
